FAERS Safety Report 7916918-9 (Version None)
Quarter: 2011Q4

REPORT INFORMATION
  Report Type: 
  Country: None (occurrence: None)
  Receive Date: 20111114
  Receipt Date: 20111102
  Transmission Date: 20120403
  Serious: Yes (Other)
  Sender: FDA-Public Use
  Company Number: 0222174

PATIENT
  Age: 38 Year
  Sex: Female

DRUGS (2)
  1. TAZOREX (PIPERACILLIN W/TAZOBACTAM) [Concomitant]
  2. TACHOSIL [Suspect]
     Indication: CAESAREAN SECTION
     Dates: start: 20100708

REACTIONS (4)
  - SURGICAL PROCEDURE REPEATED [None]
  - FOREIGN BODY [None]
  - IATROGENIC INJURY [None]
  - PROCEDURAL COMPLICATION [None]
